FAERS Safety Report 20548616 (Version 2)
Quarter: 2022Q1

REPORT INFORMATION
  Report Type: Spontaneous
  Country: IT (occurrence: IT)
  Receive Date: 20220303
  Receipt Date: 20220317
  Transmission Date: 20220424
  Serious: Yes (Other)
  Sender: FDA-Public Use
  Company Number: IT-TEVA-2022-IT-2011604

PATIENT
  Age: 19 Year
  Sex: Male

DRUGS (4)
  1. FLUOROURACIL [Suspect]
     Active Substance: FLUOROURACIL
     Indication: Nasal sinus cancer
     Dosage: THREE TIMES
     Route: 065
     Dates: start: 2019
  2. PACLITAXEL [Suspect]
     Active Substance: PACLITAXEL
     Indication: Nasal sinus cancer
     Dosage: THREE TIMES
     Route: 065
     Dates: start: 2019
  3. CISPLATIN [Suspect]
     Active Substance: CISPLATIN
     Indication: Nasal sinus cancer
     Dosage: THREE TIMES
     Route: 065
     Dates: start: 2019
  4. CISPLATIN [Suspect]
     Active Substance: CISPLATIN
     Dosage: 220 MG/M2
     Route: 065
     Dates: start: 2019

REACTIONS (4)
  - Dysgeusia [Unknown]
  - Decreased appetite [Unknown]
  - Tinnitus [Recovered/Resolved with Sequelae]
  - Drug ineffective [Unknown]

NARRATIVE: CASE EVENT DATE: 20190101
